FAERS Safety Report 10348733 (Version 1)
Quarter: 2014Q3

REPORT INFORMATION
  Report Type: Spontaneous
  Country: DE (occurrence: DE)
  Receive Date: 20140729
  Receipt Date: 20140729
  Transmission Date: 20150326
  Serious: Yes (Other)
  Sender: FDA-Public Use
  Company Number: DE-TEVA-496741GER

PATIENT
  Age: 80 Year
  Sex: Female
  Weight: 89 kg

DRUGS (9)
  1. EUTHYROX [Concomitant]
     Active Substance: LEVOTHYROXINE SODIUM
     Indication: THYROID OPERATION
     Dosage: 88 / 100 ALWAYS 1 TABLET ALTERNATELY
  2. ATORVASTATIN [Suspect]
     Active Substance: ATORVASTATIN
     Indication: LIPID METABOLISM DISORDER
     Dosage: 40 MILLIGRAM DAILY;
     Dates: start: 20140703
  3. METFORMIN [Concomitant]
     Active Substance: METFORMIN HYDROCHLORIDE
     Indication: DIABETES MELLITUS
     Dosage: 3000 MILLIGRAM DAILY;
  4. CLOPIDOGREL [Suspect]
     Active Substance: CLOPIDOGREL BISULFATE
     Indication: STENT PLACEMENT
     Dosage: 75 MILLIGRAM DAILY;
     Dates: start: 20140130
  5. TORASEMID [Concomitant]
     Active Substance: TORSEMIDE
     Indication: OEDEMA PERIPHERAL
     Dosage: 20 MILLIGRAM DAILY;
  6. SOTALOL. [Concomitant]
     Active Substance: SOTALOL
     Indication: ARRHYTHMIA
     Dosage: 160 MILLIGRAM DAILY;
  7. MARCUMAR [Concomitant]
     Active Substance: PHENPROCOUMON
     Dosage: 3 MILLIGRAM DAILY;
  8. CARMEN [Concomitant]
     Active Substance: LERCANIDIPINE
     Indication: HYPERTENSION
     Dosage: 10 MILLIGRAM DAILY;
  9. BENZBROMARON [Concomitant]
     Dosage: 100 MILLIGRAM DAILY;

REACTIONS (6)
  - Blood glucose increased [Unknown]
  - Asthenia [Unknown]
  - Intestinal obstruction [Unknown]
  - Myalgia [Unknown]
  - Abnormal loss of weight [Unknown]
  - Decreased appetite [Unknown]

NARRATIVE: CASE EVENT DATE: 20140705
